FAERS Safety Report 21723186 (Version 2)
Quarter: 2022Q4

REPORT INFORMATION
  Report Type: Report from Study
  Country: FR (occurrence: FR)
  Receive Date: 20221213
  Receipt Date: 20221228
  Transmission Date: 20230112
  Serious: Yes (Hospitalization, Other)
  Sender: FDA-Public Use
  Company Number: FR-002147023-NVSC2022FR284826

PATIENT

DRUGS (9)
  1. RUXOLITINIB [Suspect]
     Active Substance: RUXOLITINIB
     Indication: Myelofibrosis
     Dosage: 5 MG, BID 2/DAYS
     Route: 048
     Dates: start: 20211115
  2. NAVITOCLAX [Suspect]
     Active Substance: NAVITOCLAX
     Indication: Myelofibrosis
     Dosage: UNK
     Route: 065
     Dates: start: 20211115
  3. CHOLECALCIFEROL [Concomitant]
     Active Substance: CHOLECALCIFEROL
     Indication: Prophylaxis
     Dosage: 100000 IU, Q3MO, (EVERY 3 MONTHS)
     Route: 065
     Dates: start: 20210531
  4. ACETAMINOPHEN [Concomitant]
     Active Substance: ACETAMINOPHEN
     Indication: Tendonitis
     Dosage: 1 G, PRN
     Route: 065
     Dates: start: 20211021
  5. PANTOPRAZOLE [Concomitant]
     Active Substance: PANTOPRAZOLE
     Indication: Gastrooesophageal reflux prophylaxis
     Dosage: UNK UNK, QD (EVERY 1 DAYS)
     Route: 065
     Dates: start: 2021
  6. SMECTA [Concomitant]
     Active Substance: MONTMORILLONITE
     Indication: Intestinal transit time abnormal
     Dosage: UNK, PRN, (1 BAG, AS NECESSARY)
     Route: 065
     Dates: start: 20220110
  7. ALLOPURINOL [Concomitant]
     Active Substance: ALLOPURINOL
     Indication: Gout
     Dosage: 100 MG, QD (EVERY 1 DAYS)
     Route: 065
     Dates: start: 20220309
  8. QUINAPRIL [Concomitant]
     Active Substance: QUINAPRIL
     Indication: Hypertension
     Dosage: 20 MG, QD (EVERY 1 DAYS)
     Route: 065
     Dates: start: 202209
  9. ASPIRIN DL-LYSINE [Concomitant]
     Active Substance: ASPIRIN DL-LYSINE
     Indication: Thrombosis prophylaxis
     Dosage: 100 MG, QD (EVERY 1 DAYS)
     Route: 065
     Dates: start: 1993

REACTIONS (7)
  - Anaemia [Unknown]
  - Constipation [Unknown]
  - COVID-19 [Unknown]
  - Gastrointestinal obstruction [Unknown]
  - Haematocrit decreased [Unknown]
  - Haemoglobin decreased [Not Recovered/Not Resolved]
  - Gastrointestinal haemorrhage [Unknown]

NARRATIVE: CASE EVENT DATE: 20220504
